FAERS Safety Report 7511360-7 (Version None)
Quarter: 2011Q2

REPORT INFORMATION
  Report Type: 
  Country: None (occurrence: None)
  Receive Date: 20110531
  Receipt Date: 20110117
  Transmission Date: 20111010
  Serious: Yes (Hospitalization, Other)
  Sender: FDA-Public Use
  Company Number: US-BAYER-201034354NA

PATIENT
  Age: 42 Year
  Sex: Female
  Weight: 81.633 kg

DRUGS (14)
  1. MAALOX [ALUMINIUM HYDROXIDE,MAGNESIUM HYDROXIDE] [Suspect]
  2. MULTI-VITAMIN [Concomitant]
  3. ANUSOL HC [HYDROCORTISONE ACETATE] [Concomitant]
  4. ASCORBIC ACID [Concomitant]
     Dosage: UNK
     Dates: start: 19880101
  5. VICODIN [Concomitant]
     Indication: PAIN
     Dosage: UNK
     Dates: start: 19880101
  6. YASMIN [Suspect]
     Indication: CONTRACEPTION
     Dosage: UNK UNK, UNK
     Route: 048
     Dates: start: 20030101, end: 20060101
  7. LOPROX [Concomitant]
     Indication: INTERTRIGO
  8. PERCODAN [ACETYLSALICYLIC ACID,OXYCODONE HYDROCHLORIDE] [Concomitant]
     Indication: MIGRAINE
  9. MACROBID [Concomitant]
  10. MILK THISTLE [Concomitant]
     Indication: LIVER DISORDER
  11. B-COMPLEX [VITAMIN B NOS] [Concomitant]
  12. CELEBREX [Concomitant]
  13. LOTENSIN [Concomitant]
  14. IBUPROFEN [Concomitant]
     Dosage: UNK
     Dates: start: 19880101

REACTIONS (5)
  - ABDOMINAL PAIN [None]
  - CHOLELITHIASIS [None]
  - MENTAL DISORDER [None]
  - CHOLECYSTECTOMY [None]
  - CHOLECYSTITIS CHRONIC [None]
